FAERS Safety Report 6413875-1 (Version None)
Quarter: 2009Q4

REPORT INFORMATION
  Report Type: 
  Country: None (occurrence: None)
  Receive Date: 20091026
  Receipt Date: 20091020
  Transmission Date: 20100525
  Serious: Yes (Other)
  Sender: FDA-Public Use
  Company Number: A0813056A

PATIENT
  Age: 40 Year
  Sex: Female

DRUGS (1)
  1. ARIXTRA [Suspect]
     Dosage: 2.5MG PER DAY
     Route: 042
     Dates: start: 20091001, end: 20091001

REACTIONS (3)
  - ABDOMINAL PAIN LOWER [None]
  - HAEMORRHAGE [None]
  - PERITONEAL HAEMORRHAGE [None]
